FAERS Safety Report 21305345 (Version 1)
Quarter: 2022Q3

REPORT INFORMATION
  Report Type: Spontaneous
  Country: US (occurrence: US)
  Receive Date: 20220908
  Receipt Date: 20220908
  Transmission Date: 20221027
  Serious: Yes (Hospitalization)
  Sender: FDA-Public Use
  Company Number: US-BRISTOL-MYERS SQUIBB COMPANY-2022-100602

PATIENT
  Age: 52 Year
  Sex: Male

DRUGS (2)
  1. SPRYCEL [Suspect]
     Active Substance: DASATINIB
     Indication: Pancytopenia
     Dosage: FREQUENCY: DAILY
     Route: 048
     Dates: start: 20220513
  2. NEUPOGEN [Concomitant]
     Active Substance: FILGRASTIM
     Indication: Product used for unknown indication
     Route: 065

REACTIONS (2)
  - Hospitalisation [Unknown]
  - Intentional product use issue [Unknown]
